FAERS Safety Report 22303435 (Version 4)
Quarter: 2023Q2

REPORT INFORMATION
  Report Type: Spontaneous
  Country: DE (occurrence: DE)
  Receive Date: 20230510
  Receipt Date: 20230519
  Transmission Date: 20230722
  Serious: Yes (Hospitalization, Other)
  Sender: FDA-Public Use
  Company Number: None

PATIENT
  Age: 3 Year
  Sex: Male

DRUGS (18)
  1. CLOBAZAM [Suspect]
     Active Substance: CLOBAZAM
     Indication: Epilepsy with myoclonic-atonic seizures
     Dosage: UNK
     Route: 065
     Dates: start: 201307
  2. CLOBAZAM [Suspect]
     Active Substance: CLOBAZAM
     Indication: Petit mal epilepsy
     Dosage: UNK
     Route: 065
     Dates: start: 2013
  3. CLOBAZAM [Suspect]
     Active Substance: CLOBAZAM
     Indication: Status epilepticus
  4. VALPROATE SODIUM [Suspect]
     Active Substance: VALPROATE SODIUM
     Indication: Epilepsy with myoclonic-atonic seizures
     Dosage: UNK
     Route: 065
  5. VALPROATE SODIUM [Suspect]
     Active Substance: VALPROATE SODIUM
     Indication: Petit mal epilepsy
  6. VALPROATE SODIUM [Suspect]
     Active Substance: VALPROATE SODIUM
     Indication: Status epilepticus
  7. LAMOTRIGINE [Concomitant]
     Active Substance: LAMOTRIGINE
     Indication: Epilepsy with myoclonic-atonic seizures
     Dosage: UNK
     Route: 065
     Dates: start: 201306
  8. LAMOTRIGINE [Concomitant]
     Active Substance: LAMOTRIGINE
     Indication: Petit mal epilepsy
     Dosage: UNK
     Route: 065
     Dates: start: 2013
  9. LAMOTRIGINE [Concomitant]
     Active Substance: LAMOTRIGINE
     Indication: Status epilepticus
  10. CLONAZEPAM [Concomitant]
     Active Substance: CLONAZEPAM
     Indication: Epilepsy with myoclonic-atonic seizures
     Dosage: UNK
     Route: 065
     Dates: start: 201306
  11. CLONAZEPAM [Concomitant]
     Active Substance: CLONAZEPAM
     Indication: Petit mal epilepsy
     Dosage: UNK
     Route: 065
     Dates: start: 2013
  12. CLONAZEPAM [Concomitant]
     Active Substance: CLONAZEPAM
     Indication: Status epilepticus
  13. BROMINE [Concomitant]
     Active Substance: BROMINE
     Indication: Epilepsy with myoclonic-atonic seizures
     Dosage: UNK
     Route: 065
     Dates: start: 201306
  14. BROMINE [Concomitant]
     Active Substance: BROMINE
     Indication: Petit mal epilepsy
     Dosage: UNK
     Route: 065
     Dates: start: 2013
  15. BROMINE [Concomitant]
     Active Substance: BROMINE
     Indication: Status epilepticus
  16. ETHOSUXIMIDE [Concomitant]
     Active Substance: ETHOSUXIMIDE
     Indication: Epilepsy with myoclonic-atonic seizures
     Dosage: UNK
     Route: 065
     Dates: start: 201307
  17. ETHOSUXIMIDE [Concomitant]
     Active Substance: ETHOSUXIMIDE
     Indication: Petit mal epilepsy
     Dosage: UNK
     Route: 065
     Dates: start: 2013
  18. ETHOSUXIMIDE [Concomitant]
     Active Substance: ETHOSUXIMIDE
     Indication: Status epilepticus

REACTIONS (1)
  - Encephalopathy [Unknown]

NARRATIVE: CASE EVENT DATE: 20130101
